FAERS Safety Report 9390507 (Version 1)
Quarter: 2013Q3

REPORT INFORMATION
  Report Type: Spontaneous
  Country: US (occurrence: US)
  Receive Date: 20130709
  Receipt Date: 20130709
  Transmission Date: 20140515
  Serious: Yes (Hospitalization)
  Sender: FDA-Public Use
  Company Number: US-ACCORD-018372

PATIENT
  Age: 81 Year
  Sex: Male

DRUGS (7)
  1. SIMVASTATIN [Suspect]
     Indication: PRODUCT USED FOR UNKNOWN INDICATION
     Dosage: DAILY
  2. ASPIRIN [Concomitant]
  3. GEMFIBROZIL [Interacting]
     Indication: PRODUCT USED FOR UNKNOWN INDICATION
     Route: 048
  4. ISOSORBIDEDINITRAAT [Concomitant]
  5. CLOPIDOGREL [Concomitant]
  6. METOPROLOL TARTRATE [Concomitant]
     Route: 048
  7. FUROSEMIDE [Concomitant]

REACTIONS (4)
  - Drug interaction [Unknown]
  - Rhabdomyolysis [Unknown]
  - Renal failure acute [Unknown]
  - Acute myocardial infarction [Unknown]
